FAERS Safety Report 5737369-1 (Version None)
Quarter: 2008Q2

REPORT INFORMATION
  Report Type: 
  Country: None (occurrence: None)
  Receive Date: 20080514
  Receipt Date: 20080206
  Transmission Date: 20081010
  Serious: Yes (Other)
  Sender: FDA-Public Use
  Company Number: US-BRISTOL-MYERS SQUIBB COMPANY-14032676

PATIENT
  Age: 61 Year
  Sex: Female

DRUGS (5)
  1. IXEMPRA KIT [Suspect]
     Indication: BREAST CANCER
     Dosage: CYCLE 2 START DATE - 21 JAN 2008.  40 MG/M2 = 76 MG
     Route: 042
     Dates: start: 20071231
  2. DECADRON [Concomitant]
     Indication: PREMEDICATION
     Dates: start: 20071231
  3. BENADRYL [Concomitant]
     Indication: PREMEDICATION
     Dates: start: 20071231
  4. ZANTAC [Concomitant]
     Indication: PREMEDICATION
     Dates: start: 20071231
  5. HYDROCODONE BITARTRATE [Concomitant]
     Indication: PAIN

REACTIONS (6)
  - CONSTIPATION [None]
  - HYPERSENSITIVITY [None]
  - MUSCULOSKELETAL PAIN [None]
  - NAUSEA [None]
  - NEUROPATHY PERIPHERAL [None]
  - VOMITING [None]
